FAERS Safety Report 14664710 (Version 1)
Quarter: 2018Q1

REPORT INFORMATION
  Report Type: Report from Study
  Country: JP (occurrence: JP)
  Receive Date: 20180321
  Receipt Date: 20180321
  Transmission Date: 20180509
  Serious: Yes (Other)
  Sender: FDA-Public Use
  Company Number: JP-TEVA-758405ROM

PATIENT
  Age: 37 Year
  Sex: Male
  Weight: 58.4 kg

DRUGS (3)
  1. GLATIRAMER ACETATE 20MG [Suspect]
     Active Substance: GLATIRAMER ACETATE
     Indication: RELAPSING-REMITTING MULTIPLE SCLEROSIS
     Dosage: 20 MILLIGRAM DAILY;
     Route: 058
     Dates: start: 20160801, end: 20170321
  2. GLATIRAMER ACETATE 20MG [Suspect]
     Active Substance: GLATIRAMER ACETATE
     Dosage: 20 MILLIGRAM DAILY;
     Route: 058
     Dates: start: 20160801, end: 20170321
  3. GLATIRAMER ACETATE 20MG [Suspect]
     Active Substance: GLATIRAMER ACETATE
     Dosage: 20 MILLIGRAM DAILY;
     Route: 058
     Dates: start: 20160801, end: 20170321

REACTIONS (12)
  - Injection site swelling [Recovered/Resolved]
  - Pruritus generalised [Recovered/Resolved]
  - Urticaria [Recovered/Resolved]
  - Immediate post-injection reaction [Recovered/Resolved]
  - Nausea [None]
  - Visual impairment [None]
  - Brugada syndrome [Not Recovered/Not Resolved]
  - Anaphylactic reaction [Recovered/Resolved]
  - Injection site pain [Recovered/Resolved]
  - Injection site erythema [Recovered/Resolved]
  - Injection site pruritus [Recovered/Resolved]
  - Pyrexia [Recovered/Resolved]

NARRATIVE: CASE EVENT DATE: 20160801
